FAERS Safety Report 9290944 (Version 2)
Quarter: 2013Q2

REPORT INFORMATION
  Report Type: Spontaneous
  Country: US (occurrence: US)
  Receive Date: 20130515
  Receipt Date: 20130612
  Transmission Date: 20140414
  Serious: Yes (Other)
  Sender: FDA-Public Use
  Company Number: US-BAYER-2013-058348

PATIENT
  Age: 67 Year
  Sex: Female
  Weight: 68.03 kg

DRUGS (2)
  1. ALKA-SELTZER PLUS COLD + COUGH FORMULA CITRUS [Suspect]
     Indication: NASOPHARYNGITIS
     Dosage: 2 DF, ONCE
     Route: 048
     Dates: start: 20130502, end: 20130502
  2. ALKA-SELTZER PLUS COLD + COUGH FORMULA CITRUS [Suspect]
     Indication: THROAT IRRITATION

REACTIONS (8)
  - Activities of daily living impaired [Recovered/Resolved]
  - Nightmare [Not Recovered/Not Resolved]
  - Pruritus [Recovered/Resolved]
  - Urticaria [Recovered/Resolved]
  - Flushing [Recovered/Resolved]
  - Headache [None]
  - Drug hypersensitivity [None]
  - Hypersomnia [Recovered/Resolved]
